FAERS Safety Report 9123041 (Version 1)
Quarter: 2013Q1

REPORT INFORMATION
  Report Type: Spontaneous
  Country: FR (occurrence: FR)
  Receive Date: 20130227
  Receipt Date: 20130227
  Transmission Date: 20140127
  Serious: Yes (Other)
  Sender: FDA-Public Use
  Company Number: FR-PFIZER INC-2013070557

PATIENT
  Age: 72 Year
  Sex: Female

DRUGS (2)
  1. CISPLATIN [Suspect]
     Indication: OVARIAN EPITHELIAL CANCER
     Dosage: 150 MG, CYCLIC
     Route: 041
     Dates: start: 20130117
  2. PACLITAXEL [Suspect]
     Indication: OVARIAN EPITHELIAL CANCER
     Dosage: 160 MG, CYCLIC
     Route: 041
     Dates: start: 20130117

REACTIONS (3)
  - Pruritus [Recovered/Resolved]
  - Rash [Recovered/Resolved]
  - Erythema [Recovered/Resolved]
